FAERS Safety Report 5774097-0 (Version None)
Quarter: 2008Q2

REPORT INFORMATION
  Report Type: 
  Country: None (occurrence: None)
  Receive Date: 20080616
  Receipt Date: 20080610
  Transmission Date: 20081010
  Serious: Yes (Hospitalization, Disabling, Other)
  Sender: FDA-Public Use
  Company Number: US-MERCK-0705USA02508

PATIENT
  Age: 34 Year
  Sex: Female
  Weight: 64 kg

DRUGS (3)
  1. FOSAMAX [Suspect]
     Indication: OSTEOPOROSIS
     Route: 048
     Dates: start: 19950101, end: 20000101
  2. CORTICOSTEROIDS (UNSPECIFIED) [Concomitant]
     Route: 065
     Dates: start: 19800101, end: 20070101
  3. HORMONES (UNSPECIFIED) [Concomitant]
     Route: 065
     Dates: start: 19960101

REACTIONS (58)
  - ACUTE SINUSITIS [None]
  - ADVERSE EVENT [None]
  - AFFECTIVE DISORDER [None]
  - ALCOHOL ABUSE [None]
  - ANXIETY [None]
  - BACK PAIN [None]
  - CARDIAC ARREST [None]
  - CELLULITIS [None]
  - CEREBROVASCULAR ACCIDENT [None]
  - CERVICITIS [None]
  - CHEST PAIN [None]
  - COMA [None]
  - CONTUSION [None]
  - CONVULSION [None]
  - DENTAL CARIES [None]
  - DEPRESSION [None]
  - DEPRESSION SUICIDAL [None]
  - DYSMENORRHOEA [None]
  - EUSTACHIAN TUBE DYSFUNCTION [None]
  - FACIAL BONES FRACTURE [None]
  - FOLLICULITIS [None]
  - GINGIVAL DISORDER [None]
  - HEADACHE [None]
  - HEPATITIS C ANTIBODY POSITIVE [None]
  - HERNIA [None]
  - HYPERSENSITIVITY [None]
  - HYPERTENSION [None]
  - HYPOAESTHESIA ORAL [None]
  - IMPAIRED HEALING [None]
  - INFECTION [None]
  - JOINT ABSCESS [None]
  - JOINT RANGE OF MOTION DECREASED [None]
  - LIMB MALFORMATION [None]
  - ORAL PAIN [None]
  - OSTEOARTHRITIS [None]
  - OVERDOSE [None]
  - PAIN [None]
  - PAIN IN JAW [None]
  - PERIODONTAL DISEASE [None]
  - PHYSICAL ASSAULT [None]
  - PSYCHOTIC DISORDER [None]
  - PULPITIS DENTAL [None]
  - PYREXIA [None]
  - RESORPTION BONE INCREASED [None]
  - SINUS DISORDER [None]
  - STERNAL FRACTURE [None]
  - SUBCUTANEOUS ABSCESS [None]
  - SUBSTANCE ABUSE [None]
  - SUICIDAL IDEATION [None]
  - SYNCOPE [None]
  - TIBIA FRACTURE [None]
  - TOOTH DISORDER [None]
  - TOOTH FRACTURE [None]
  - TOOTH LOSS [None]
  - UTERINE CERVIX STENOSIS [None]
  - UTERINE HAEMORRHAGE [None]
  - WOUND INFECTION STAPHYLOCOCCAL [None]
  - WRIST FRACTURE [None]
